FAERS Safety Report 4759324-0 (Version None)
Quarter: 2005Q3

REPORT INFORMATION
  Report Type: 
  Country: None (occurrence: None)
  Receive Date: 20050826
  Receipt Date: 20050630
  Transmission Date: 20060218
  Serious: No
  Sender: FDA-Public Use
  Company Number: 214707

PATIENT
  Age: 72 Year
  Sex: Female
  Weight: 52.3 kg

DRUGS (4)
  1. RAPTIVA [Suspect]
     Indication: PSORIASIS
     Dosage: 0.4 ML, SINGLE, SUBCUTANEOUS; SEE IMAGE
     Route: 058
     Dates: start: 20050228, end: 20050228
  2. ALTACE [Concomitant]
  3. HYDROCHLOROTHIAZIDE [Concomitant]
  4. ALLEGRA [Concomitant]

REACTIONS (1)
  - THROMBOCYTOPENIA [None]
